FAERS Safety Report 14304994 (Version 1)
Quarter: 2017Q4

REPORT INFORMATION
  Report Type: Spontaneous
  Country: JP (occurrence: JP)
  Receive Date: 20171219
  Receipt Date: 20171219
  Transmission Date: 20180321
  Serious: Yes (Hospitalization)
  Sender: FDA-Public Use
  Company Number: JP-OTSUKA-03100-JPN-06-0278

PATIENT
  Age: 47 Year
  Sex: Male
  Weight: 56.6 kg

DRUGS (18)
  1. DEPAS [Concomitant]
     Active Substance: ETIZOLAM
     Dosage: 1 MG, QD
     Route: 048
     Dates: start: 20030416
  2. BIPERIDENE [Concomitant]
     Active Substance: BIPERIDEN
     Indication: PARKINSONISM
     Dosage: 6 MG, UNK
     Route: 048
     Dates: start: 20050413
  3. RISPERDAL [Concomitant]
     Active Substance: RISPERIDONE
     Dosage: 1 MG, TID
     Route: 048
     Dates: start: 19990924
  4. MAGNESIUM OXIDE. [Concomitant]
     Active Substance: MAGNESIUM OXIDE
     Dosage: 0.7 G, TID
     Route: 048
     Dates: start: 20001113
  5. FLUNITRAZEPAM [Concomitant]
     Active Substance: FLUNITRAZEPAM
     Dosage: 4 MG, QD
     Route: 048
     Dates: start: 20020902
  6. HALOPERIDOL. [Concomitant]
     Active Substance: HALOPERIDOL
     Indication: HALLUCINATION
     Dosage: 24 MG, UNK
     Route: 048
     Dates: start: 20050413
  7. LEMONAMIN [Concomitant]
     Dosage: 8 MG, TID
     Route: 048
     Dates: start: 20050413
  8. SOFMIN [Concomitant]
     Dosage: 25 MG, QD
     Route: 048
     Dates: start: 20050413
  9. ABILIFY [Suspect]
     Active Substance: ARIPIPRAZOLE
     Dosage: 5 MG, TID
     Route: 048
     Dates: start: 20060615, end: 20060725
  10. AKIRIDEN [Concomitant]
     Active Substance: BIPERIDEN
     Dosage: 2 MG, TID
     Route: 048
     Dates: start: 20050413
  11. FLUMEZIN [Concomitant]
     Dosage: 3 MG, TID
     Route: 048
     Dates: start: 19990715
  12. RISPERIDONE. [Concomitant]
     Active Substance: RISPERIDONE
     Indication: HALLUCINATION
     Dosage: 3 MG, UNK
     Route: 048
     Dates: start: 19990924
  13. ABILIFY [Suspect]
     Active Substance: ARIPIPRAZOLE
     Indication: EXTRAPYRAMIDAL DISORDER
     Dosage: 15 MG, UNK
     Route: 048
     Dates: start: 20060615, end: 20060625
  14. NEULEPTIL [Concomitant]
     Active Substance: PERICIAZINE
     Dosage: 40 MG, QD
     Route: 048
     Dates: start: 20050413
  15. CLARITIN [Concomitant]
     Active Substance: LORATADINE
     Dosage: 10 MG, QD
     Route: 048
     Dates: start: 20060323
  16. FLUNITRAZEPAM [Concomitant]
     Active Substance: FLUNITRAZEPAM
     Indication: INSOMNIA
     Dosage: 4 MG, UNK
     Route: 048
     Dates: start: 20020902
  17. LEVOMEPROMAZINE [Concomitant]
     Active Substance: LEVOMEPROMAZINE
     Indication: SEDATION
     Dosage: 25 MG, UNK
     Route: 048
     Dates: start: 20050413
  18. FLUPHENAZINE HYDROCHLORIDE. [Concomitant]
     Active Substance: FLUPHENAZINE HYDROCHLORIDE
     Indication: HALLUCINATION
     Dosage: UNK
     Route: 048
     Dates: start: 19990615

REACTIONS (2)
  - Thirst [Recovered/Resolved]
  - Polydipsia [Recovered/Resolved]

NARRATIVE: CASE EVENT DATE: 20060620
